FAERS Safety Report 5009333-1 (Version None)
Quarter: 2006Q2

REPORT INFORMATION
  Report Type: 
  Country: None (occurrence: None)
  Receive Date: 20060522
  Receipt Date: 20060505
  Transmission Date: 20061013
  Serious: Yes (Other)
  Sender: FDA-Public Use
  Company Number: 2002055087

PATIENT
  Age: 50 Year
  Sex: Female
  Weight: 46.2669 kg

DRUGS (4)
  1. LIPITOR [Suspect]
     Indication: BLOOD CHOLESTEROL INCREASED
     Dosage: 10 MG (10 MG, 1 IN 1 D), ORAL
     Route: 048
     Dates: start: 20020701, end: 20020828
  2. ATENOLOL [Concomitant]
  3. ASPIRIN [Concomitant]
  4. ENALAPRIL MALEATE [Concomitant]

REACTIONS (5)
  - DRY EYE [None]
  - EYE PAIN [None]
  - INSOMNIA [None]
  - LACRIMATION INCREASED [None]
  - SENSATION OF FOREIGN BODY [None]
